FAERS Safety Report 9709654 (Version 3)
Quarter: 2013Q4

REPORT INFORMATION
  Report Type: Spontaneous
  Country: DE (occurrence: DE)
  Receive Date: 20131126
  Receipt Date: 20131210
  Transmission Date: 20140711
  Serious: Yes (Hospitalization)
  Sender: FDA-Public Use
  Company Number: PHHY2013DE099040

PATIENT
  Sex: Female

DRUGS (4)
  1. GILENYA [Suspect]
     Indication: MULTIPLE SCLEROSIS
     Dosage: 0.5 MG, QD
     Route: 048
     Dates: start: 20130707
  2. RAMIPRIL [Concomitant]
     Indication: HYPERTENSION
     Dosage: 10 MG, QD FOR SEVERAL MONTHS
     Route: 048
  3. HYDROCHLOROTHIAZIDE [Concomitant]
     Indication: HYPERTENSION
     Dosage: 25 MG, QD FOR SEVERAL MONTHS
     Route: 048
  4. VITAMIN D3 CALCIUM [Concomitant]
     Indication: OSTEOPOROSIS PROPHYLAXIS
     Dosage: QD
     Route: 048
     Dates: start: 201307

REACTIONS (4)
  - Dyspnoea exertional [Recovered/Resolved]
  - General physical health deterioration [Recovered/Resolved]
  - Left ventricular hypertrophy [Unknown]
  - Diastolic dysfunction [Unknown]
